FAERS Safety Report 9551388 (Version 1)
Quarter: 2013Q3

REPORT INFORMATION
  Report Type: Spontaneous
  Country: US (occurrence: None)
  Receive Date: 20130923
  Receipt Date: 20130923
  Transmission Date: 20140515
  Serious: Yes (Hospitalization)
  Sender: FDA-Public Use
  Company Number: None

PATIENT
  Age: 68 Year
  Sex: Female
  Weight: 75.6 kg

DRUGS (4)
  1. FEMARA [Suspect]
     Indication: BREAST CANCER METASTATIC
     Route: 048
     Dates: start: 20130625, end: 20130915
  2. LAPATINIB [Suspect]
     Indication: BREAST CANCER METASTATIC
     Route: 048
     Dates: start: 20130625, end: 20130915
  3. NORVASC [Concomitant]
  4. CRESTOR [Concomitant]

REACTIONS (7)
  - Breast cancer metastatic [None]
  - Malignant neoplasm progression [None]
  - Nausea [None]
  - Abdominal discomfort [None]
  - Dizziness [None]
  - Dehydration [None]
  - Fluid intake reduced [None]
